FAERS Safety Report 16158031 (Version 1)
Quarter: 2019Q2

REPORT INFORMATION
  Report Type: Spontaneous
  Country: IT (occurrence: IT)
  Receive Date: 20190404
  Receipt Date: 20190404
  Transmission Date: 20190711
  Serious: Yes (Disabling, Other)
  Sender: FDA-Public Use
  Company Number: IT-MYLANLABS-2019M1030738

PATIENT
  Age: 46 Year
  Sex: Male

DRUGS (4)
  1. AZILECT [Suspect]
     Active Substance: RASAGILINE MESYLATE
     Indication: PRODUCT USED FOR UNKNOWN INDICATION
     Route: 065
  2. MIRAPEXIN [Suspect]
     Active Substance: PRAMIPEXOLE
     Indication: PARKINSONISM
     Dosage: 2.8 MILLIGRAM, QD
     Route: 065
     Dates: start: 200611, end: 201107
  3. MIRAPEXIN [Suspect]
     Active Substance: PRAMIPEXOLE
     Dosage: 0.72 MILLIGRAM, QD
     Route: 065
  4. ROPINIROLE. [Suspect]
     Active Substance: ROPINIROLE
     Indication: PARKINSONISM
     Route: 065

REACTIONS (5)
  - Crying [Recovered/Resolved]
  - Hyperphagia [Recovered/Resolved]
  - Hypersexuality [Recovered/Resolved]
  - Conversion disorder [Recovered/Resolved]
  - Gambling disorder [Recovered/Resolved]

NARRATIVE: CASE EVENT DATE: 2008
